FAERS Safety Report 6287133-2 (Version None)
Quarter: 2009Q3

REPORT INFORMATION
  Report Type: 
  Country: None (occurrence: None)
  Receive Date: 20090724
  Receipt Date: 20090720
  Transmission Date: 20100115
  Serious: Yes (Hospitalization)
  Sender: FDA-Public Use
  Company Number: GB-EBEWE-0954CARBO09

PATIENT
  Age: 72 Year
  Sex: Female

DRUGS (7)
  1. CARBOPLATIN [Suspect]
     Indication: OVARIAN CANCER
  2. TAXOL [Suspect]
     Indication: OVARIAN CANCER
     Dosage: 140 MG, Q WEEKLY
     Dates: start: 20060601
  3. AMLODIPINE [Concomitant]
  4. CANDESARTAN CILEXETIL [Concomitant]
  5. GLICLAZIDE [Concomitant]
  6. ROSIGLITAZONE [Concomitant]
  7. WARFARIN SODIUM [Concomitant]

REACTIONS (4)
  - COGNITIVE DISORDER [None]
  - MANIA [None]
  - MEMORY IMPAIRMENT [None]
  - TUMOUR MARKER INCREASED [None]
